FAERS Safety Report 10793882 (Version 1)
Quarter: 2015Q1

REPORT INFORMATION
  Report Type: Spontaneous
  Country: BR (occurrence: BR)
  Receive Date: 20150213
  Receipt Date: 20150213
  Transmission Date: 20150721
  Serious: Yes (Hospitalization, Other)
  Sender: FDA-Public Use
  Company Number: BR-ASTRAZENECA-2015SE12736

PATIENT
  Age: 697 Month
  Sex: Female
  Weight: 58 kg

DRUGS (7)
  1. VITAMIN D [Concomitant]
     Active Substance: CHOLECALCIFEROL
     Dates: start: 2013
  2. FORXIGA [Suspect]
     Active Substance: DAPAGLIFLOZIN
     Indication: TYPE 1 DIABETES MELLITUS
     Route: 048
     Dates: start: 201410, end: 201411
  3. GALVUS MET [Suspect]
     Active Substance: METFORMIN HYDROCHLORIDE\VILDAGLIPTIN
     Indication: TYPE 1 DIABETES MELLITUS
     Route: 065
     Dates: start: 201411, end: 201411
  4. TIBIAL [Concomitant]
     Indication: HORMONE REPLACEMENT THERAPY
     Dates: start: 2014
  5. PURAN [Concomitant]
     Active Substance: LEVOTHYROXINE SODIUM
     Dates: start: 2013
  6. MERITOR [Suspect]
     Active Substance: GLIMEPIRIDE\METFORMIN
     Indication: TYPE 1 DIABETES MELLITUS
     Route: 048
     Dates: start: 201411, end: 201411
  7. INSULIN [Concomitant]
     Active Substance: INSULIN NOS
     Indication: TYPE 1 DIABETES MELLITUS
     Route: 058
     Dates: start: 201407

REACTIONS (5)
  - Vomiting [Recovered/Resolved]
  - Depression [Recovering/Resolving]
  - Diarrhoea [Recovered/Resolved]
  - Product use issue [Recovered/Resolved]
  - Weight decreased [Recovered/Resolved]

NARRATIVE: CASE EVENT DATE: 201410
